FAERS Safety Report 22037570 (Version 1)
Quarter: 2023Q1

REPORT INFORMATION
  Report Type: Other
  Country: MX (occurrence: MX)
  Receive Date: 20230227
  Receipt Date: 20230227
  Transmission Date: 20230418
  Serious: Yes (Death, Hospitalization)
  Sender: FDA-Public Use
  Company Number: MX-ALVOGEN-2023089275

PATIENT
  Age: 53 Year
  Sex: Female

DRUGS (2)
  1. PYRIDOSTIGMINE [Suspect]
     Active Substance: PYRIDOSTIGMINE
     Indication: Myasthenia gravis
  2. PREDNISONE [Concomitant]
     Active Substance: PREDNISONE
     Indication: Myasthenia gravis

REACTIONS (6)
  - Acute myocardial infarction [Fatal]
  - Polyarteritis nodosa [Fatal]
  - Cardiogenic shock [Fatal]
  - Cardiac arrest [Fatal]
  - Polyneuropathy [Fatal]
  - Arteriospasm coronary [Fatal]
